FAERS Safety Report 4557279-5 (Version None)
Quarter: 2005Q1

REPORT INFORMATION
  Report Type: 
  Country: None (occurrence: None)
  Receive Date: 20050118
  Receipt Date: 20050110
  Transmission Date: 20050727
  Serious: Yes (Death)
  Sender: FDA-Public Use
  Company Number: 2005US000036

PATIENT
  Age: 3 Year
  Sex: Male
  Weight: 12 kg

DRUGS (4)
  1. AMBISOME [Suspect]
     Dosage: 5.00 MG/KG, INTRAVENOUS
     Route: 042
  2. VANCOMYCIN [Concomitant]
  3. RIFAMPICIN [Concomitant]
  4. AMIKACIN [Concomitant]

REACTIONS (4)
  - HYPOTENSION [None]
  - METABOLIC ACIDOSIS [None]
  - PERIPHERAL CIRCULATORY FAILURE [None]
  - VENTRICULAR TACHYCARDIA [None]
